FAERS Safety Report 4668299-4 (Version None)
Quarter: 2005Q2

REPORT INFORMATION
  Report Type: 
  Country: None (occurrence: None)
  Receive Date: 20050523
  Receipt Date: 20050207
  Transmission Date: 20051028
  Serious: Yes (Other)
  Sender: FDA-Public Use
  Company Number: PHEH2005US01788

PATIENT
  Age: 55 Year
  Sex: Female

DRUGS (2)
  1. AREDIA [Suspect]
     Dates: start: 20010601
  2. ZOMETA [Suspect]
     Dates: start: 20021101

REACTIONS (4)
  - JAW DISORDER [None]
  - OSTEONECROSIS [None]
  - SOFT TISSUE DISORDER [None]
  - TOOTH EXTRACTION [None]
